FAERS Safety Report 8478063-6 (Version None)
Quarter: 2012Q2

REPORT INFORMATION
  Report Type: 
  Country: None (occurrence: None)
  Receive Date: 20120622
  Receipt Date: 20120613
  Transmission Date: 20120825
  Serious: Yes (Other)
  Sender: FDA-Public Use
  Company Number: FK201201700

PATIENT
  Age: 39 Year
  Sex: Female

DRUGS (4)
  1. OXALIPLATIN [Suspect]
     Indication: ADENOCARCINOMA PANCREAS
  2. PANITUMUMAB [Concomitant]
  3. GEMCITABINE [Concomitant]
  4. CAPECITABINE [Concomitant]

REACTIONS (5)
  - AGITATION [None]
  - DISCOMFORT [None]
  - PAIN IN JAW [None]
  - MUSCLE RIGIDITY [None]
  - MUSCLE SPASMS [None]
